FAERS Safety Report 14442817 (Version 1)
Quarter: 2018Q1

REPORT INFORMATION
  Report Type: Spontaneous
  Country: US (occurrence: US)
  Receive Date: 20180125
  Receipt Date: 20180125
  Transmission Date: 20180509
  Serious: Yes (Life-Threatening, Hospitalization, Disabling)
  Sender: FDA-Public Use
  Company Number: US-SA-2018SA015972

PATIENT
  Age: 49 Year
  Sex: Male

DRUGS (3)
  1. PLAVIX [Suspect]
     Active Substance: CLOPIDOGREL BISULFATE
     Route: 048
  2. ASPIRIN. [Suspect]
     Active Substance: ASPIRIN
     Route: 065
  3. COUMADIN [Suspect]
     Active Substance: WARFARIN SODIUM
     Route: 065

REACTIONS (35)
  - Hemiparesis [Recovering/Resolving]
  - Peripheral nerve paresis [Recovering/Resolving]
  - Haematoma [Recovering/Resolving]
  - General physical health deterioration [Recovering/Resolving]
  - Strabismus [Recovering/Resolving]
  - Headache [Recovering/Resolving]
  - Encephalomalacia [Recovering/Resolving]
  - Mental disorder [Recovering/Resolving]
  - Vitreous haemorrhage [Recovering/Resolving]
  - Vision blurred [Recovering/Resolving]
  - Coma [Recovering/Resolving]
  - Hypoaesthesia [Recovering/Resolving]
  - Aphasia [Recovering/Resolving]
  - Hemianopia homonymous [Recovering/Resolving]
  - Diplopia [Recovering/Resolving]
  - Macular degeneration [Recovering/Resolving]
  - Eyelid ptosis [Recovering/Resolving]
  - Cerebral haemorrhage [Recovering/Resolving]
  - Depressed level of consciousness [Recovering/Resolving]
  - Balance disorder [Recovering/Resolving]
  - Binocular eye movement disorder [Recovering/Resolving]
  - Hyperreflexia [Recovering/Resolving]
  - Carpal tunnel syndrome [Recovering/Resolving]
  - Loss of personal independence in daily activities [Recovering/Resolving]
  - Brain herniation [Recovering/Resolving]
  - Hemiplegia [Recovering/Resolving]
  - Malaise [Recovering/Resolving]
  - Retinal haemorrhage [Recovering/Resolving]
  - Headache [Not Recovered/Not Resolved]
  - Brain injury [Recovering/Resolving]
  - Ulnar nerve injury [Recovering/Resolving]
  - Brain midline shift [Recovering/Resolving]
  - Optic nerve cupping [Recovering/Resolving]
  - Impaired driving ability [Recovering/Resolving]
  - IIIrd nerve paralysis [Recovering/Resolving]

NARRATIVE: CASE EVENT DATE: 20020718
